FAERS Safety Report 11980792 (Version 1)
Quarter: 2016Q1

REPORT INFORMATION
  Report Type: Spontaneous
  Country: JP (occurrence: JP)
  Receive Date: 20160129
  Receipt Date: 20160129
  Transmission Date: 20160526
  Serious: Yes (Hospitalization, Other)
  Sender: FDA-Public Use
  Company Number: JP-FRESENIUS KABI-FK201600449

PATIENT
  Age: 53 Year
  Sex: Female

DRUGS (5)
  1. ETOPOSIDE (MANUFACTURER UNKNOWN) [Suspect]
     Active Substance: ETOPOSIDE
     Indication: ADULT T-CELL LYMPHOMA/LEUKAEMIA
     Route: 048
  2. PREDNISOLONE. [Suspect]
     Active Substance: PREDNISOLONE
     Indication: ADULT T-CELL LYMPHOMA/LEUKAEMIA
     Route: 048
  3. CYCLOPHOSPHAMIDE. [Concomitant]
     Active Substance: CYCLOPHOSPHAMIDE
     Indication: ADULT T-CELL LYMPHOMA/LEUKAEMIA
  4. DOXORUBICIN [Concomitant]
     Active Substance: DOXORUBICIN
     Indication: ADULT T-CELL LYMPHOMA/LEUKAEMIA
  5. VINCRISTINE [Concomitant]
     Active Substance: VINCRISTINE
     Indication: ADULT T-CELL LYMPHOMA/LEUKAEMIA

REACTIONS (3)
  - Sepsis [Recovered/Resolved]
  - Lymphadenitis bacterial [Recovered/Resolved]
  - Febrile neutropenia [Recovered/Resolved]
